FAERS Safety Report 22384132 (Version 1)
Quarter: 2023Q2

REPORT INFORMATION
  Report Type: Spontaneous
  Country: US (occurrence: US)
  Receive Date: 20230530
  Receipt Date: 20230530
  Transmission Date: 20230721
  Serious: Yes (Other)
  Sender: FDA-Public Use
  Company Number: US-BAYER-2023A063148

PATIENT

DRUGS (2)
  1. ASPIRIN [Suspect]
     Active Substance: ASPIRIN
     Indication: Palpitations
     Dosage: UNK
  2. COCAINE [Concomitant]
     Active Substance: COCAINE
     Dosage: UNK

REACTIONS (2)
  - Drug abuse [None]
  - Palpitations [Unknown]
